FAERS Safety Report 20715550 (Version 1)
Quarter: 2022Q2

REPORT INFORMATION
  Report Type: Spontaneous
  Country: US (occurrence: US)
  Receive Date: 20220415
  Receipt Date: 20220415
  Transmission Date: 20220721
  Serious: No
  Sender: FDA-Public Use
  Company Number: US-ALLERGAN-2124656US

PATIENT
  Age: 46 Year
  Sex: Female

DRUGS (6)
  1. LILETTA [Suspect]
     Active Substance: LEVONORGESTREL
     Indication: Heavy menstrual bleeding
     Dosage: 52 MG, SINGLE
     Route: 015
     Dates: start: 20210601, end: 20210630
  2. CITALOPRAM [Concomitant]
     Active Substance: CITALOPRAM HYDROBROMIDE
  3. XARELTO [Concomitant]
     Active Substance: RIVAROXABAN
  4. NEXIUM [Concomitant]
     Active Substance: ESOMEPRAZOLE MAGNESIUM
  5. Nasal allergy spray [Concomitant]
  6. IRON [Concomitant]
     Active Substance: IRON

REACTIONS (2)
  - Off label use [Unknown]
  - Device expulsion [Unknown]

NARRATIVE: CASE EVENT DATE: 20210601
